FAERS Safety Report 17257461 (Version 4)
Quarter: 2021Q4

REPORT INFORMATION
  Report Type: Spontaneous
  Country: AU (occurrence: AU)
  Receive Date: 20200110
  Receipt Date: 20211005
  Transmission Date: 20220303
  Serious: Yes (Hospitalization, Disabling, Other)
  Sender: FDA-Public Use
  Company Number: NVSC2020AU004219

PATIENT
  Age: 44 Year
  Sex: Female
  Weight: 48.5 kg

DRUGS (31)
  1. MYCOPHENOLATE MOFETIL [Suspect]
     Active Substance: MYCOPHENOLATE MOFETIL
     Indication: Psoriatic arthropathy
     Dosage: 500 MG, TID
     Route: 048
     Dates: start: 20180726
  2. METHOTREXATE [Suspect]
     Active Substance: METHOTREXATE
     Indication: Psoriatic arthropathy
     Dosage: 10 MG, BIW
     Route: 058
     Dates: start: 20170228, end: 20171109
  3. METHOTREXATE [Suspect]
     Active Substance: METHOTREXATE
     Dosage: 10 MG, BIW
     Route: 058
     Dates: start: 20180511, end: 20180726
  4. METHOTREXATE [Suspect]
     Active Substance: METHOTREXATE
     Dosage: 10 UNK, BIW (MCG)
     Route: 058
     Dates: start: 20180820
  5. METHOTREXATE [Suspect]
     Active Substance: METHOTREXATE
     Dosage: 20 MG, QW
     Route: 058
  6. ROSUVASTATIN [Suspect]
     Active Substance: ROSUVASTATIN
     Indication: Product used for unknown indication
     Dosage: 10 MG
     Route: 065
  7. EZETIMIBE [Suspect]
     Active Substance: EZETIMIBE
     Indication: Product used for unknown indication
     Dosage: 10 MG
     Route: 065
  8. RAMIPRIL [Suspect]
     Active Substance: RAMIPRIL
     Indication: Product used for unknown indication
     Dosage: UNK MG, UNKNOWN (5-10)
     Route: 065
  9. TOPIRAMATE [Suspect]
     Active Substance: TOPIRAMATE
     Indication: Migraine
     Dosage: 200 MG, UNKNOWN
     Route: 065
  10. LEFLUNOMIDE [Suspect]
     Active Substance: LEFLUNOMIDE
     Indication: Psoriatic arthropathy
     Dosage: UNK
     Route: 065
  11. ACETAMINOPHEN [Suspect]
     Active Substance: ACETAMINOPHEN
     Indication: Product used for unknown indication
     Dosage: UNK
     Route: 065
  12. LEVOMEFOLIC ACID [Suspect]
     Active Substance: LEVOMEFOLIC ACID
     Indication: Product used for unknown indication
     Dosage: UNK
     Route: 065
  13. OXYCONTIN [Suspect]
     Active Substance: OXYCODONE HYDROCHLORIDE
     Indication: Product used for unknown indication
     Dosage: 10 MG, BID
     Route: 048
  14. OXYCODONE HYDROCHLORIDE [Suspect]
     Active Substance: OXYCODONE HYDROCHLORIDE
     Indication: Product used for unknown indication
     Dosage: 5 MG, QD
     Route: 048
  15. ASPIRIN [Suspect]
     Active Substance: ASPIRIN
     Indication: Product used for unknown indication
     Dosage: 100 MG, UNKNOWN
     Route: 065
  16. PRASUGREL [Suspect]
     Active Substance: PRASUGREL
     Indication: Product used for unknown indication
     Dosage: 10 MG, QD
     Route: 065
  17. IVABRADINE [Suspect]
     Active Substance: IVABRADINE
     Indication: Product used for unknown indication
     Dosage: 7.5 MG, BID
     Route: 065
  18. SILDENAFIL [Suspect]
     Active Substance: SILDENAFIL
     Indication: Raynaud^s phenomenon
     Dosage: 12.5 MG, PRN
     Route: 048
  19. NITROGLYCERIN [Suspect]
     Active Substance: NITROGLYCERIN
     Indication: Product used for unknown indication
     Dosage: UNK
     Route: 048
  20. CANNABIS SATIVA SUBSP. INDICA TOP [Suspect]
     Active Substance: CANNABIS SATIVA SUBSP. INDICA TOP
     Indication: Product used for unknown indication
     Dosage: UNK
     Route: 065
  21. REBOXETINE [Suspect]
     Active Substance: REBOXETINE
     Indication: Product used for unknown indication
     Dosage: 4 MG, BID
     Route: 065
  22. CHOLECALCIFEROL [Suspect]
     Active Substance: CHOLECALCIFEROL
     Indication: Product used for unknown indication
     Dosage: 50 UNK, QD (MCG)
     Route: 065
  23. NOVORAPID [Suspect]
     Active Substance: INSULIN ASPART
     Indication: Product used for unknown indication
     Dosage: UNK (PUMP WITH CONTINUOUS BGL MONITOR)
     Route: 058
  24. GLUCAGEN HYPOKIT [Suspect]
     Active Substance: GLUCAGON HYDROCHLORIDE
     Indication: Product used for unknown indication
     Dosage: UNK
     Route: 065
  25. MIRENA [Suspect]
     Active Substance: LEVONORGESTREL
     Indication: Product used for unknown indication
     Dosage: 52 MG, UNKNOWN
     Route: 065
     Dates: start: 20100107
  26. SULFASALAZINE [Suspect]
     Active Substance: SULFASALAZINE
     Indication: Psoriatic arthropathy
     Dosage: UNK
     Route: 065
     Dates: start: 20170323, end: 20170419
  27. SULFASALAZINE [Suspect]
     Active Substance: SULFASALAZINE
     Dosage: UNK
     Route: 065
  28. HUMIRA [Suspect]
     Active Substance: ADALIMUMAB
     Indication: Product used for unknown indication
     Dosage: 40 MG, BIW
     Route: 058
     Dates: start: 20170825, end: 20171109
  29. PREDNISOLONE [Suspect]
     Active Substance: PREDNISOLONE
     Indication: Product used for unknown indication
     Dosage: UNK
     Route: 065
  30. HYDROXYCHLOROQUINE [Suspect]
     Active Substance: HYDROXYCHLOROQUINE
     Indication: Psoriatic arthropathy
     Dosage: UNK
     Route: 065
     Dates: start: 20180206, end: 20180719
  31. TOFACITINIB [Suspect]
     Active Substance: TOFACITINIB
     Indication: Psoriatic arthropathy
     Dosage: UNK
     Route: 065
     Dates: start: 202011

REACTIONS (25)
  - Type 1 diabetes mellitus [Unknown]
  - Psoriatic arthropathy [Unknown]
  - Systemic lupus erythematosus [Unknown]
  - Suicidal ideation [Unknown]
  - Chronic cutaneous lupus erythematosus [Unknown]
  - Psoriasis [Unknown]
  - Gait disturbance [Unknown]
  - Migraine [Unknown]
  - Liver function test abnormal [Unknown]
  - Depression [Unknown]
  - Nausea [Unknown]
  - Ageusia [Unknown]
  - Abdominal pain upper [Unknown]
  - Panic attack [Unknown]
  - Drug interaction [Unknown]
  - Tachyarrhythmia [Unknown]
  - Viral tonsillitis [Unknown]
  - Urinary tract infection [Unknown]
  - Respiratory syncytial virus infection [Unknown]
  - Paraesthesia [Unknown]
  - Arthralgia [Unknown]
  - Fibromyalgia [Unknown]
  - Sleep disorder [Unknown]
  - DNA antibody negative [Unknown]
  - Drug ineffective [Unknown]

NARRATIVE: CASE EVENT DATE: 20171109
